FAERS Safety Report 7366227-4 (Version None)
Quarter: 2011Q1

REPORT INFORMATION
  Report Type: 
  Country: None (occurrence: None)
  Receive Date: 20110322
  Receipt Date: 20110308
  Transmission Date: 20110831
  Serious: Yes (Hospitalization)
  Sender: FDA-Public Use
  Company Number: US-JNJFOC-20071003683

PATIENT
  Sex: Female
  Weight: 35 kg

DRUGS (2)
  1. HUMIRA [Concomitant]
     Route: 058
  2. INFLIXIMAB [Suspect]
     Indication: CROHN'S DISEASE
     Dosage: TOTAL 4 DOSES
     Route: 042

REACTIONS (2)
  - FISTULA [None]
  - COLECTOMY [None]
